FAERS Safety Report 13790613 (Version 1)
Quarter: 2017Q3

REPORT INFORMATION
  Report Type: Spontaneous
  Country: US (occurrence: US)
  Receive Date: 20170725
  Receipt Date: 20170725
  Transmission Date: 20171127
  Serious: No
  Sender: FDA-Public Use
  Company Number: US-GALDERMA-US17003679

PATIENT
  Sex: Female

DRUGS (2)
  1. DIFFERIN GEL [Suspect]
     Active Substance: ADAPALENE
     Indication: ACNE
  2. DIFFERIN GEL [Suspect]
     Active Substance: ADAPALENE
     Indication: KERATOSIS PILARIS
     Dosage: 0.1%
     Route: 061

REACTIONS (3)
  - Skin exfoliation [Unknown]
  - Skin fragility [Unknown]
  - Intentional product use issue [Recovered/Resolved]
